FAERS Safety Report 8479180-7 (Version None)
Quarter: 2012Q2

REPORT INFORMATION
  Report Type: 
  Country: None (occurrence: None)
  Receive Date: 20120629
  Receipt Date: 20120620
  Transmission Date: 20120825
  Serious: Yes (Other)
  Sender: FDA-Public Use
  Company Number: US-JNJFOC-20120610611

PATIENT
  Sex: Male
  Weight: 77.11 kg

DRUGS (2)
  1. REMICADE [Suspect]
     Dosage: 4 VIALS
     Route: 042
     Dates: start: 20120203
  2. REMICADE [Suspect]
     Indication: CROHN'S DISEASE
     Dosage: 2ND INFUSION; DOSE REPORTED AS ^4 VIALS^
     Route: 042
     Dates: start: 20120222, end: 20120222

REACTIONS (9)
  - PANIC ATTACK [None]
  - ANGER [None]
  - HYPERSOMNIA [None]
  - BACK PAIN [None]
  - INFUSION RELATED REACTION [None]
  - TENSION [None]
  - CHEST DISCOMFORT [None]
  - DYSPNOEA [None]
  - TENSION HEADACHE [None]
